FAERS Safety Report 23675100 (Version 3)
Quarter: 2024Q3

REPORT INFORMATION
  Report Type: Report from Study
  Country: US (occurrence: US)
  Receive Date: 20240326
  Receipt Date: 20240807
  Transmission Date: 20241017
  Serious: Yes (Hospitalization, Other)
  Sender: ABBVIE
  Company Number: US-ABBVIE-5690048

PATIENT
  Sex: Female

DRUGS (2)
  1. RINVOQ [Suspect]
     Active Substance: UPADACITINIB
     Indication: Rheumatoid arthritis
     Dosage: FORM STRENGTH: 15MG?ER
     Route: 048
     Dates: start: 202309, end: 202403
  2. RINVOQ [Suspect]
     Active Substance: UPADACITINIB
     Indication: Rheumatoid arthritis
     Dosage: FORM STRENGTH: 15MG?ER
     Route: 048
     Dates: start: 20240627

REACTIONS (18)
  - Dysuria [Recovered/Resolved]
  - Kidney infection [Unknown]
  - White blood cell count decreased [Unknown]
  - Back pain [Recovered/Resolved]
  - Chills [Recovered/Resolved]
  - Mental impairment [Unknown]
  - Pollakiuria [Recovered/Resolved]
  - Protein urine present [Unknown]
  - Renal atrophy [Unknown]
  - Sinusitis [Recovered/Resolved]
  - Urinary retention [Recovered/Resolved]
  - White blood cell count increased [Unknown]
  - Urinary tract infection [Unknown]
  - Rheumatoid arthritis [Unknown]
  - Urinary retention [Recovered/Resolved]
  - Blood pressure decreased [Unknown]
  - Dysuria [Not Recovered/Not Resolved]
  - Thinking abnormal [Unknown]

NARRATIVE: CASE EVENT DATE: 20240101
